FAERS Safety Report 5252421-5 (Version None)
Quarter: 2007Q1

REPORT INFORMATION
  Report Type: 
  Country: None (occurrence: None)
  Receive Date: 20070301
  Receipt Date: 20061113
  Transmission Date: 20070707
  Serious: Yes (Other)
  Sender: FDA-Public Use
  Company Number: US-BRISTOL-MYERS SQUIBB COMPANY-13492483

PATIENT
  Age: 32 Year
  Sex: Female

DRUGS (3)
  1. ERBITUX [Suspect]
     Indication: COLORECTAL CANCER METASTATIC
     Route: 042
     Dates: start: 20061010, end: 20061010
  2. CAMPTOSAR [Concomitant]
  3. DIPHENHYDRAMINE HCL [Concomitant]
     Indication: PREMEDICATION
     Route: 042

REACTIONS (1)
  - INFUSION RELATED REACTION [None]
